FAERS Safety Report 7775043-0 (Version None)
Quarter: 2011Q3

REPORT INFORMATION
  Report Type: 
  Country: None (occurrence: None)
  Receive Date: 20110923
  Receipt Date: 20110916
  Transmission Date: 20111222
  Serious: Yes (Hospitalization)
  Sender: FDA-Public Use
  Company Number: FR-ROCHE-803315

PATIENT
  Sex: Male
  Weight: 71 kg

DRUGS (1)
  1. ZELBORAF [Suspect]
     Route: 048
     Dates: start: 20110812

REACTIONS (1)
  - POSTOPERATIVE WOUND INFECTION [None]
